FAERS Safety Report 5818109-4 (Version None)
Quarter: 2008Q3

REPORT INFORMATION
  Report Type: 
  Country: None (occurrence: None)
  Receive Date: 20080722
  Receipt Date: 20071023
  Transmission Date: 20090109
  Serious: Yes (Death, Disabling)
  Sender: FDA-Public Use
  Company Number: US-BAYER-US-2007-039401

PATIENT
  Sex: Male

DRUGS (2)
  1. MAGNEVIST [Suspect]
     Dosage: UNIT DOSE: 20 ML
     Dates: start: 20050909, end: 20050909
  2. OMNISCAN [Suspect]
     Dates: start: 20050824, end: 20050824

REACTIONS (1)
  - NEPHROGENIC SYSTEMIC FIBROSIS [None]
